FAERS Safety Report 15145731 (Version 1)
Quarter: 2018Q3

REPORT INFORMATION
  Report Type: Report from Study
  Country: None (occurrence: GB)
  Receive Date: 20180714
  Receipt Date: 20180714
  Transmission Date: 20181010
  Serious: Yes (Hospitalization)
  Sender: FDA-Public Use
  Company Number: GB-ABBVIE-18K-167-2327043-00

PATIENT
  Age: 72 Year
  Sex: Female

DRUGS (3)
  1. METHOTREXATE. [Concomitant]
     Active Substance: METHOTREXATE
     Indication: RHEUMATOID ARTHRITIS
  2. HUMIRA [Suspect]
     Active Substance: ADALIMUMAB
     Indication: RHEUMATOID ARTHRITIS
     Route: 058
     Dates: start: 20160309, end: 20170329
  3. PREDNISOLONE. [Concomitant]
     Active Substance: PREDNISOLONE
     Indication: PRODUCT USED FOR UNKNOWN INDICATION

REACTIONS (2)
  - Osteomyelitis [Recovered/Resolved]
  - Skin ulcer [Recovered/Resolved]

NARRATIVE: CASE EVENT DATE: 20170115
